FAERS Safety Report 25661013 (Version 1)
Quarter: 2025Q3

REPORT INFORMATION
  Report Type: Spontaneous
  Country: EU (occurrence: EU)
  Receive Date: 20250808
  Receipt Date: 20250808
  Transmission Date: 20251020
  Serious: Yes (Hospitalization, Other)
  Sender: ALEXION PHARMACEUTICALS
  Company Number: None

PATIENT
  Age: 81 Year
  Sex: Female
  Weight: 52 kg

DRUGS (4)
  1. TAGRISSO [Suspect]
     Active Substance: OSIMERTINIB
     Indication: Lung neoplasm malignant
     Dosage: 80 MILLIGRAM, QD
     Dates: start: 20240430, end: 20250404
  2. TAGRISSO [Suspect]
     Active Substance: OSIMERTINIB
     Dosage: 40 MILLIGRAM, QD
     Dates: start: 20250422, end: 20250508
  3. MELATONIN [Concomitant]
     Active Substance: MELATONIN
     Indication: Insomnia
     Dosage: STRENGTH: 2 MG.
     Dates: start: 2023
  4. ZOPICLONE [Concomitant]
     Active Substance: ZOPICLONE
     Indication: Insomnia
     Dosage: STRENGTH: 7.5 MG.
     Dates: start: 20241016

REACTIONS (1)
  - Pancytopenia [Not Recovered/Not Resolved]

NARRATIVE: CASE EVENT DATE: 20250404
